FAERS Safety Report 16310135 (Version 1)
Quarter: 2019Q2

REPORT INFORMATION
  Report Type: Spontaneous
  Country: US (occurrence: AI)
  Receive Date: 20190514
  Receipt Date: 20190514
  Transmission Date: 20190711
  Serious: Yes (Other)
  Sender: FDA-Public Use
  Company Number: US-AMGEN-AIASP2019001692

PATIENT
  Age: 63 Year
  Sex: Female

DRUGS (1)
  1. PROLIA [Suspect]
     Active Substance: DENOSUMAB
     Indication: OSTEOPOROSIS POSTMENOPAUSAL
     Dosage: 60 MG, Q6MO
     Route: 065
     Dates: start: 201812

REACTIONS (3)
  - Abdominal pain [Recovered/Resolved]
  - Ulcer haemorrhage [Unknown]
  - Constipation [Recovered/Resolved]

NARRATIVE: CASE EVENT DATE: 201812
